FAERS Safety Report 19408040 (Version 1)
Quarter: 2021Q2

REPORT INFORMATION
  Report Type: Spontaneous
  Country: BR (occurrence: BR)
  Receive Date: 20210611
  Receipt Date: 20210611
  Transmission Date: 20210717
  Serious: Yes (Other)
  Sender: FDA-Public Use
  Company Number: BR-ELI_LILLY_AND_COMPANY-BR202106000273

PATIENT
  Sex: Female

DRUGS (1)
  1. VERZENIOS 200MG [Suspect]
     Active Substance: ABEMACICLIB
     Indication: BREAST CANCER
     Dosage: 200 MG, BID
     Route: 065
     Dates: start: 202101, end: 202104

REACTIONS (2)
  - Thrombosis [Unknown]
  - Haematochezia [Unknown]
